FAERS Safety Report 8610968-5 (Version None)
Quarter: 2012Q3

REPORT INFORMATION
  Report Type: 
  Country: None (occurrence: None)
  Receive Date: 20120822
  Receipt Date: 20120529
  Transmission Date: 20120928
  Serious: Yes (Hospitalization)
  Sender: FDA-Public Use
  Company Number: DE-009507513-1208DEU007768

PATIENT

DRUGS (3)
  1. REBETOL [Suspect]
     Indication: HEPATITIS C
  2. PEGINTERFERON ALFA-2A [Suspect]
     Indication: HEPATITIS C
     Dosage: 180 MICROGRAM, QW
     Route: 058
     Dates: start: 20120302
  3. VICTRELIS [Suspect]
     Indication: HEPATITIS C

REACTIONS (1)
  - GASTRITIS [None]
